FAERS Safety Report 14444377 (Version 5)
Quarter: 2020Q4

REPORT INFORMATION
  Report Type: Report from Study
  Country: IT (occurrence: IT)
  Receive Date: 20180125
  Receipt Date: 20201005
  Transmission Date: 20210113
  Serious: Yes (Life-Threatening, Hospitalization)
  Sender: FDA-Public Use
  Company Number: PHHY2018IT012251

PATIENT
  Age: 55 Year
  Sex: Male
  Weight: 103 kg

DRUGS (2)
  1. GILENYA [Suspect]
     Active Substance: FINGOLIMOD HYDROCHLORIDE
     Indication: MULTIPLE SCLEROSIS
  2. GILENYA [Suspect]
     Active Substance: FINGOLIMOD HYDROCHLORIDE
     Indication: RELAPSING-REMITTING MULTIPLE SCLEROSIS
     Dosage: 0.5 MG, QD
     Route: 048
     Dates: start: 20171211, end: 20180123

REACTIONS (3)
  - Acute myocardial infarction [Recovered/Resolved with Sequelae]
  - Hyperhidrosis [Unknown]
  - Angina pectoris [Unknown]

NARRATIVE: CASE EVENT DATE: 20180122
